FAERS Safety Report 18319221 (Version 3)
Quarter: 2021Q2

REPORT INFORMATION
  Report Type: Spontaneous
  Country: JP (occurrence: JP)
  Receive Date: 20200928
  Receipt Date: 20210426
  Transmission Date: 20210717
  Serious: Yes (Other)
  Sender: FDA-Public Use
  Company Number: NVSJ2020JP007050

PATIENT
  Age: 84 Year
  Sex: Male
  Weight: 60 kg

DRUGS (5)
  1. BEOVU [Suspect]
     Active Substance: BROLUCIZUMAB-DBLL
     Dosage: 6 MG, LEFT EYE
     Route: 031
     Dates: start: 20200811, end: 20200811
  2. BEOVU [Suspect]
     Active Substance: BROLUCIZUMAB-DBLL
     Indication: AGE-RELATED MACULAR DEGENERATION
     Dosage: 6 MG, RIGHT EYE
     Route: 031
     Dates: start: 20200703, end: 20200703
  3. BEOVU [Suspect]
     Active Substance: BROLUCIZUMAB-DBLL
     Dosage: 6 MG, LEFT EYE
     Route: 031
     Dates: start: 20200710, end: 20200710
  4. MOXIFLOXACIN. [Concomitant]
     Active Substance: MOXIFLOXACIN
     Indication: INFECTION PROPHYLAXIS
     Dosage: 1 DRP, 5QD
     Route: 047
     Dates: start: 20200710, end: 20200717
  5. BEOVU [Suspect]
     Active Substance: BROLUCIZUMAB-DBLL
     Dosage: 6 MG, RIGHT EYE
     Route: 031
     Dates: start: 20200804, end: 20200804

REACTIONS (3)
  - Corneal opacity [Unknown]
  - Anterior chamber cell [Unknown]
  - Iritis [Recovered/Resolved]

NARRATIVE: CASE EVENT DATE: 20200711
